FAERS Safety Report 25687121 (Version 2)
Quarter: 2025Q3

REPORT INFORMATION
  Report Type: Spontaneous
  Country: GB (occurrence: GB)
  Receive Date: 20250816
  Receipt Date: 20250903
  Transmission Date: 20251020
  Serious: Yes (Other)
  Sender: ADVANZ PHARMA
  Company Number: GB-MLMSERVICE-20250804-PI597432-00270-2

PATIENT

DRUGS (11)
  1. PREDNISOLONE [Suspect]
     Active Substance: PREDNISOLONE
     Indication: Eosinophilic granulomatosis with polyangiitis
     Route: 048
  2. METHYLPREDNISOLONE [Suspect]
     Active Substance: METHYLPREDNISOLONE
     Indication: Eosinophilic granulomatosis with polyangiitis
     Route: 042
  3. CYCLOPHOSPHAMIDE [Suspect]
     Active Substance: CYCLOPHOSPHAMIDE
     Indication: Eosinophilic granulomatosis with polyangiitis
  4. CARBOCYSTEINE [Concomitant]
     Active Substance: CARBOCYSTEINE
  5. FLUOXETINE [Concomitant]
     Active Substance: FLUOXETINE HYDROCHLORIDE
  6. DIAZEPAM [Concomitant]
     Active Substance: DIAZEPAM
  7. MONTELUKAST [Concomitant]
     Active Substance: MONTELUKAST
  8. PREGABALIN [Concomitant]
     Active Substance: PREGABALIN
  9. ALBUTEROL [Concomitant]
     Active Substance: ALBUTEROL
  10. ASPIRIN [Concomitant]
     Active Substance: ASPIRIN
     Indication: Lacunar infarction
  11. ASPIRIN [Concomitant]
     Active Substance: ASPIRIN
     Indication: Cerebral infarction

REACTIONS (1)
  - Renal impairment [Unknown]
